FAERS Safety Report 6662025-5 (Version None)
Quarter: 2010Q1

REPORT INFORMATION
  Report Type: 
  Country: None (occurrence: None)
  Receive Date: 20100331
  Receipt Date: 20091222
  Transmission Date: 20100710
  Serious: No
  Sender: FDA-Public Use
  Company Number: US-BRISTOL-MYERS SQUIBB COMPANY-14912588

PATIENT

DRUGS (1)
  1. ERBITUX [Suspect]

REACTIONS (3)
  - DRY EYE [None]
  - EYE IRRITATION [None]
  - GROWTH OF EYELASHES [None]
